FAERS Safety Report 6527193-4 (Version None)
Quarter: 2010Q1

REPORT INFORMATION
  Report Type: 
  Country: None (occurrence: None)
  Receive Date: 20100105
  Receipt Date: 20091228
  Transmission Date: 20100710
  Serious: Yes (Other)
  Sender: FDA-Public Use
  Company Number: B0622379A

PATIENT
  Sex: Male

DRUGS (2)
  1. PAROXETINE HCL [Suspect]
     Indication: DEPRESSION
     Dosage: 20MG PER DAY
     Dates: end: 20091126
  2. ZYPREXA [Suspect]
     Indication: DEPRESSION
     Dosage: 5MG PER DAY
     Dates: end: 20091126

REACTIONS (9)
  - ACIDOSIS [None]
  - BLOOD SODIUM DECREASED [None]
  - BRADYCARDIA [None]
  - CYANOSIS NEONATAL [None]
  - DRUG EXPOSURE DURING PREGNANCY [None]
  - GRAND MAL CONVULSION [None]
  - HYPOTONIA [None]
  - OPISTHOTONUS [None]
  - RESPIRATORY DISTRESS [None]
